FAERS Safety Report 17846406 (Version 1)
Quarter: 2020Q2

REPORT INFORMATION
  Report Type: Spontaneous
  Country: US (occurrence: US)
  Receive Date: 20200601
  Receipt Date: 20200601
  Transmission Date: 20200714
  Serious: Yes (Other)
  Sender: FDA-Public Use
  Company Number: None

PATIENT
  Age: 67 Year
  Sex: Female
  Weight: 86.5 kg

DRUGS (4)
  1. ALOGLIPTIN 12.5MG [Concomitant]
  2. BYSTOLIC 20 MG [Concomitant]
  3. SPIRONOLACTONE 100 MG [Concomitant]
  4. EUTHYROX [Suspect]
     Active Substance: LEVOTHYROXINE SODIUM
     Indication: HYPOTHYROIDISM
     Route: 048
     Dates: start: 20090123

REACTIONS (3)
  - Muscle spasms [None]
  - Palpitations [None]
  - Product substitution issue [None]

NARRATIVE: CASE EVENT DATE: 20200601
